FAERS Safety Report 4450766-X (Version None)
Quarter: 2004Q3

REPORT INFORMATION
  Report Type: 
  Country: None (occurrence: None)
  Receive Date: 20040913
  Receipt Date: 20040603
  Transmission Date: 20050211
  Serious: No
  Sender: FDA-Public Use
  Company Number: 2004-BP-04401BP(0)

PATIENT
  Sex: Male

DRUGS (5)
  1. SPIRIVA [Suspect]
     Indication: CHRONIC OBSTRUCTIVE AIRWAYS DISEASE
     Dosage: 18 MCG (18 MCG,OD), IH
     Dates: start: 20040501
  2. FLOMAX [Concomitant]
  3. LEXAPRO [Concomitant]
  4. BUSPAR [Concomitant]
  5. OTHER  UNSPECIFIED MEDICATIONS [Concomitant]

REACTIONS (1)
  - POLLAKIURIA [None]
